FAERS Safety Report 13855038 (Version 1)
Quarter: 2017Q3

REPORT INFORMATION
  Report Type: Spontaneous
  Country: FR (occurrence: FR)
  Receive Date: 20170810
  Receipt Date: 20170810
  Transmission Date: 20171127
  Serious: Yes (Hospitalization)
  Sender: FDA-Public Use
  Company Number: FR-PFIZER INC-2017345487

PATIENT
  Age: 84 Year
  Sex: Female

DRUGS (9)
  1. ESIDREX [Concomitant]
     Active Substance: HYDROCHLOROTHIAZIDE
     Dosage: UNK
  2. LERCAN [Concomitant]
     Active Substance: LERCANIDIPINE
     Dosage: UNK
  3. MICARDIS [Concomitant]
     Active Substance: TELMISARTAN
     Dosage: UNK
  4. PANTOPRAZOLE [Concomitant]
     Active Substance: PANTOPRAZOLE
     Dosage: UNK
  5. CORDARONE [Suspect]
     Active Substance: AMIODARONE HYDROCHLORIDE
     Indication: ATRIAL FIBRILLATION
     Dosage: 1 DF, 1X/DAY
     Route: 048
     Dates: start: 20160217, end: 20170707
  6. BISOCE [Concomitant]
     Active Substance: BISOPROLOL
     Dosage: UNK
  7. METFORMIN [Concomitant]
     Active Substance: METFORMIN HYDROCHLORIDE
     Dosage: UNK
  8. STILNOX [Concomitant]
     Active Substance: ZOLPIDEM TARTRATE
     Dosage: UNK
  9. KARDEGIC [Concomitant]
     Active Substance: ASPIRIN LYSINE
     Dosage: UNK

REACTIONS (4)
  - Hyperthyroidism [Not Recovered/Not Resolved]
  - Weight decreased [Not Recovered/Not Resolved]
  - Chest pain [Unknown]
  - Palpitations [Unknown]

NARRATIVE: CASE EVENT DATE: 20170707
